FAERS Safety Report 19677799 (Version 2)
Quarter: 2021Q4

REPORT INFORMATION
  Report Type: Other
  Country: US (occurrence: US)
  Receive Date: 20210810
  Receipt Date: 20211015
  Transmission Date: 20220303
  Serious: Yes (Hospitalization)
  Sender: FDA-Public Use
  Company Number: US-ROCHE-2885222

PATIENT
  Sex: Male

DRUGS (1)
  1. VALCYTE [Suspect]
     Active Substance: VALGANCICLOVIR HYDROCHLORIDE
     Indication: Lung transplant
     Dosage: 50MG/ML SOLUTION - 9ML PO ONCE DAILY WITH DINNER
     Route: 048

REACTIONS (3)
  - Hernia [Unknown]
  - Blood pressure increased [Unknown]
  - Off label use [Unknown]
